FAERS Safety Report 16023420 (Version 1)
Quarter: 2019Q1

REPORT INFORMATION
  Report Type: Report from Study
  Country: AU (occurrence: AU)
  Receive Date: 20190301
  Receipt Date: 20190301
  Transmission Date: 20190418
  Serious: Yes (Other)
  Sender: FDA-Public Use
  Company Number: AU-GW PHARMA-201804AUGW0031

PATIENT

DRUGS (13)
  1. LEVETIRACETAM. [Concomitant]
     Active Substance: LEVETIRACETAM
     Indication: EPILEPSY
     Dosage: 1000 MILLIGRAM, QD
  2. LAMOTRIGINE. [Concomitant]
     Active Substance: LAMOTRIGINE
     Indication: EPILEPSY
     Dosage: 30 MILLIGRAM, QD
  3. EPIDIOLEX [Suspect]
     Active Substance: CANNABIDIOL
     Indication: EPILEPSY
     Dosage: 18.5 MG/KG, 400 MILLIGRAM QD
     Route: 048
     Dates: start: 20180301
  4. TOPIRAMATE. [Concomitant]
     Active Substance: TOPIRAMATE
     Dosage: 182.5 MILLIGRAM, 82.5 MG MANE, 100 MG NOCTE
  5. LAMOTRIGINE. [Concomitant]
     Active Substance: LAMOTRIGINE
     Dosage: 40 MG, QD (15 MG MANE, 25 MG NOCTE)
  6. EPILIM [Suspect]
     Active Substance: VALPROATE SODIUM
     Dosage: 5 ML QAM AND 7 ML NOCTE
  7. EPILIM [Suspect]
     Active Substance: VALPROATE SODIUM
     Dosage: 360 MILLIGRAM, BID
     Dates: start: 20180420, end: 20180511
  8. VALPROATE [Concomitant]
     Active Substance: VALPROIC ACID
     Indication: PRODUCT USED FOR UNKNOWN INDICATION
     Dosage: 280 MILLIGRAM, BID
     Route: 065
  9. EPILIM [Suspect]
     Active Substance: VALPROATE SODIUM
     Dosage: 280 MILLIGRAM, BID
     Dates: start: 20180511
  10. TOPIRAMATE. [Concomitant]
     Active Substance: TOPIRAMATE
     Indication: EPILEPSY
     Dosage: 187.5 MILLIGRAM, QD
  11. LEVETIRACETAM. [Concomitant]
     Active Substance: LEVETIRACETAM
     Dosage: 500 MILLIGRAM, BID
  12. EPILIM [Suspect]
     Active Substance: VALPROATE SODIUM
     Indication: EPILEPSY
     Dosage: 440 MILLIGRAM, QD
     Route: 048
     Dates: start: 2016, end: 20180420
  13. CLOBAZAM. [Concomitant]
     Active Substance: CLOBAZAM
     Indication: EPILEPSY
     Dosage: 10 MILLIGRAM, QD

REACTIONS (1)
  - Liver function test increased [Recovered/Resolved]

NARRATIVE: CASE EVENT DATE: 20180409
